FAERS Safety Report 25453507 (Version 1)
Quarter: 2025Q2

REPORT INFORMATION
  Report Type: Spontaneous
  Country: CN (occurrence: CN)
  Receive Date: 20250619
  Receipt Date: 20250619
  Transmission Date: 20250716
  Serious: Yes (Life-Threatening, Other)
  Sender: BAXTER
  Company Number: None

PATIENT
  Age: 54 Year
  Sex: Female

DRUGS (1)
  1. MESNA [Suspect]
     Active Substance: MESNA
     Indication: Adjuvant therapy
     Dosage: 800 MG, TID
     Route: 042
     Dates: start: 20250606, end: 20250606

REACTIONS (18)
  - Infusion related reaction [Recovering/Resolving]
  - Dysphoria [Recovering/Resolving]
  - Drug hypersensitivity [Recovering/Resolving]
  - Laryngeal oedema [Recovering/Resolving]
  - Restlessness [Recovering/Resolving]
  - Lip discolouration [Recovering/Resolving]
  - Peripheral coldness [Recovering/Resolving]
  - Arrhythmia [Recovering/Resolving]
  - Orthopnoea [Recovering/Resolving]
  - Cyanosis [Recovering/Resolving]
  - Wheezing [Recovering/Resolving]
  - Throat tightness [Not Recovered/Not Resolved]
  - Breath sounds abnormal [Recovering/Resolving]
  - Heart rate irregular [Recovered/Resolved]
  - Tachypnoea [Recovering/Resolving]
  - Dyspnoea [Recovering/Resolving]
  - Swelling face [Recovering/Resolving]
  - Hypertension [Recovering/Resolving]

NARRATIVE: CASE EVENT DATE: 20250606
